FAERS Safety Report 21436955 (Version 2)
Quarter: 2022Q4

REPORT INFORMATION
  Report Type: Spontaneous
  Country: AR (occurrence: AR)
  Receive Date: 20221010
  Receipt Date: 20221103
  Transmission Date: 20230113
  Serious: Yes (Hospitalization, Other)
  Sender: FDA-Public Use
  Company Number: AR-NAPPMUNDI-GBR-2022-0102034

PATIENT
  Age: 48 Year
  Sex: Female

DRUGS (4)
  1. MORPHINE SULFATE [Suspect]
     Active Substance: MORPHINE SULFATE
     Indication: Pain management
     Dosage: UNK
     Route: 065
  2. MORPHINE SULFATE [Suspect]
     Active Substance: MORPHINE SULFATE
     Indication: Pain
  3. SUNITINIB [Concomitant]
     Active Substance: SUNITINIB
     Indication: Alveolar soft part sarcoma
     Dosage: UNK
     Route: 065
  4. PREGABALIN [Concomitant]
     Active Substance: PREGABALIN
     Indication: Pain
     Dosage: HIGH DOSES
     Route: 065

REACTIONS (4)
  - Cholestasis [Recovered/Resolved]
  - Sphincter of Oddi dysfunction [Recovered/Resolved]
  - Incorrect product administration duration [Unknown]
  - Abdominal pain [Unknown]
